FAERS Safety Report 11627769 (Version 1)
Quarter: 2015Q4

REPORT INFORMATION
  Report Type: Spontaneous
  Country: US (occurrence: US)
  Receive Date: 20151014
  Receipt Date: 20151014
  Transmission Date: 20160304
  Serious: Yes (Hospitalization)
  Sender: FDA-Public Use
  Company Number: US-ROCHE-1630877

PATIENT
  Sex: Female
  Weight: 87.17 kg

DRUGS (2)
  1. COUMADINE [Concomitant]
     Active Substance: WARFARIN SODIUM
  2. ESBRIET [Suspect]
     Active Substance: PIRFENIDONE
     Indication: IDIOPATHIC PULMONARY FIBROSIS
     Route: 048
     Dates: start: 20150512

REACTIONS (6)
  - Malaise [Unknown]
  - Respiratory tract congestion [Unknown]
  - Sinusitis [Unknown]
  - Cough [Unknown]
  - Sputum abnormal [Unknown]
  - Bronchitis [Unknown]
